FAERS Safety Report 10155003 (Version 2)
Quarter: 2014Q2

REPORT INFORMATION
  Report Type: Spontaneous
  Country: JP (occurrence: JP)
  Receive Date: 20140506
  Receipt Date: 20140616
  Transmission Date: 20141212
  Serious: Yes (Death, Other)
  Sender: FDA-Public Use
  Company Number: JP-MPIJNJ-2014JNJ003203

PATIENT
  Sex: 0

DRUGS (2)
  1. VELCADE [Suspect]
     Indication: PLASMA CELL MYELOMA
     Dosage: 1.3 MG/M2, UNK
     Route: 065
     Dates: start: 201403, end: 201403
  2. LENALIDOMIDE [Suspect]
     Dosage: UNK
     Route: 048
     Dates: start: 201403

REACTIONS (3)
  - Fungal infection [Fatal]
  - Tumour lysis syndrome [Unknown]
  - Leukopenia [Unknown]
